FAERS Safety Report 8317416-3 (Version None)
Quarter: 2012Q2

REPORT INFORMATION
  Report Type: 
  Country: None (occurrence: None)
  Receive Date: 20120427
  Receipt Date: 20120418
  Transmission Date: 20120825
  Serious: Yes (Hospitalization)
  Sender: FDA-Public Use
  Company Number: GB-JNJFOC-20110709940

PATIENT
  Sex: Female

DRUGS (11)
  1. BENDROFLUAZIDE [Concomitant]
  2. TRAMADOL HCL [Concomitant]
  3. DIDRONEL PMO [Concomitant]
  4. SPIRONOLACTONE [Concomitant]
  5. ASPIRIN [Concomitant]
  6. SIMVASTATIN [Concomitant]
  7. LANSOPRAZOLE [Concomitant]
  8. INFLIXIMAB, RECOMBINANT [Suspect]
     Indication: RHEUMATOID ARTHRITIS
     Route: 042
     Dates: start: 20040615
  9. METHOTREXATE [Concomitant]
  10. FOLIC ACID [Concomitant]
  11. METHOTREXATE [Concomitant]
     Dates: start: 20040615

REACTIONS (3)
  - ABDOMINAL PAIN [None]
  - VOMITING [None]
  - PANCREATITIS [None]
